FAERS Safety Report 5475430-X (Version None)
Quarter: 2007Q4

REPORT INFORMATION
  Report Type: 
  Country: None (occurrence: None)
  Receive Date: 20071003
  Receipt Date: 20070926
  Transmission Date: 20080405
  Serious: Yes (Death)
  Sender: FDA-Public Use
  Company Number: US-JNJFOC-20070905874

PATIENT
  Sex: Male
  Weight: 56.7 kg

DRUGS (2)
  1. DURAGESIC-100 [Suspect]
     Indication: CANCER PAIN
     Route: 062
  2. CARTIA XT [Concomitant]
     Indication: BLOOD PRESSURE
     Route: 048

REACTIONS (1)
  - LUNG NEOPLASM MALIGNANT [None]
